FAERS Safety Report 5156381-7 (Version None)
Quarter: 2006Q4

REPORT INFORMATION
  Report Type: 
  Country: None (occurrence: None)
  Receive Date: 20061122
  Receipt Date: 20061020
  Transmission Date: 20070319
  Serious: Yes (Disabling, Congenital Anomaly, Other)
  Sender: FDA-Public Use
  Company Number: ZA-BRISTOL-MYERS SQUIBB COMPANY-13559935

PATIENT

DRUGS (5)
  1. EFAVIRENZ [Suspect]
     Indication: HIV INFECTION
     Route: 064
     Dates: start: 20050223, end: 20051229
  2. LAMIVUDINE [Concomitant]
     Dates: start: 20050223, end: 20051229
  3. STAVUDINE [Concomitant]
     Dates: start: 20050223, end: 20051229
  4. BACTRIM [Concomitant]
  5. VITAMIN B COMPLEX CAP [Concomitant]

REACTIONS (4)
  - NOSE DEFORMITY [None]
  - PREGNANCY [None]
  - PREMATURE BABY [None]
  - TALIPES [None]
